FAERS Safety Report 16004660 (Version 2)
Quarter: 2019Q1

REPORT INFORMATION
  Report Type: Spontaneous
  Country: PL (occurrence: PL)
  Receive Date: 20190226
  Receipt Date: 20190308
  Transmission Date: 20190418
  Serious: Yes (Death, Hospitalization)
  Sender: FDA-Public Use
  Company Number: PL-ROCHE-2272565

PATIENT
  Age: 65 Year
  Sex: Male
  Weight: 84 kg

DRUGS (5)
  1. THEOSPIREX [Concomitant]
     Active Substance: THEOPHYLLINE ANHYDROUS
     Indication: DYSPNOEA
     Route: 048
  2. BISOCARD [Concomitant]
     Active Substance: BISOPROLOL
     Indication: TACHYCARDIA
  3. ESBRIET [Suspect]
     Active Substance: PIRFENIDONE
     Indication: IDIOPATHIC PULMONARY FIBROSIS
     Route: 048
     Dates: start: 20171123, end: 20190219
  4. BISOCARD [Concomitant]
     Active Substance: BISOPROLOL
     Indication: HYPERTENSION
     Route: 048
  5. DIUVER [Concomitant]
     Active Substance: TORSEMIDE
     Indication: HYPERTENSION
     Route: 048

REACTIONS (3)
  - Death [Fatal]
  - Respiratory failure [Not Recovered/Not Resolved]
  - Influenza [Not Recovered/Not Resolved]

NARRATIVE: CASE EVENT DATE: 20190222
